FAERS Safety Report 24377934 (Version 1)
Quarter: 2024Q3

REPORT INFORMATION
  Report Type: Spontaneous
  Country: CA (occurrence: CA)
  Receive Date: 20240930
  Receipt Date: 20240930
  Transmission Date: 20241016
  Serious: Yes (Disabling, Other)
  Sender: AUROBINDO
  Company Number: CA-MLMSERVICE-20240913-PI191617-00218-2

PATIENT
  Age: 7 Year
  Sex: Male

DRUGS (4)
  1. METHOTREXATE [Suspect]
     Active Substance: METHOTREXATE
     Indication: B-cell type acute leukaemia
     Dosage: MAINTENANCE (ORAL MTX WEEKLY (DAYS 1-78)
     Route: 048
  2. METHOTREXATE [Suspect]
     Active Substance: METHOTREXATE
     Dosage: INTERIM MAINTENANCE I (IV MTX ESCALATING DOSE ON HIGH DOSE ON DAY 1, 11, 21, 31, 41 OR 1, 15, 29, 43
     Route: 042
  3. METHOTREXATE [Suspect]
     Active Substance: METHOTREXATE
     Dosage: INTERIM MAINTENANCE II (IV MTX ON DAYS 1, 11, 21, 31, 41)
     Route: 042
  4. METHOTREXATE [Suspect]
     Active Substance: METHOTREXATE
     Dosage: INDUCTION (INTRATHECAL (IT) METHOTREXATE (MTX) ON DAY 8, 29); CONSOLIDATION (IT MTX ON DAY 1,8, 15,
     Route: 037

REACTIONS (4)
  - Lennox-Gastaut syndrome [Unknown]
  - Intellectual disability [Unknown]
  - Confusional state [Unknown]
  - Neurotoxicity [Unknown]
